FAERS Safety Report 15724530 (Version 1)
Quarter: 2018Q4

REPORT INFORMATION
  Report Type: Spontaneous
  Country: US (occurrence: US)
  Receive Date: 20181214
  Receipt Date: 20181214
  Transmission Date: 20190205
  Serious: Yes (Hospitalization, Other)
  Sender: FDA-Public Use
  Company Number: US-PRINSTON PHARMACEUTICAL INC.-2018PRN01600

PATIENT
  Age: 56 Year
  Sex: Male
  Weight: 84.35 kg

DRUGS (3)
  1. BENAZEPRIL HYDROCHLORIDE. [Suspect]
     Active Substance: BENAZEPRIL HYDROCHLORIDE
     Dosage: 20 MG, 1X/DAY
  2. BENAZEPRIL HYDROCHLORIDE. [Suspect]
     Active Substance: BENAZEPRIL HYDROCHLORIDE
     Dosage: 40 MG, 1X/DAY
  3. BENAZEPRIL HYDROCHLORIDE. [Suspect]
     Active Substance: BENAZEPRIL HYDROCHLORIDE
     Dosage: 40 MG, 2X/DAY
     Dates: start: 201705, end: 20181104

REACTIONS (19)
  - Hepatic pain [Not Recovered/Not Resolved]
  - Hyperkalaemia [Unknown]
  - Hypertension [Recovered/Resolved]
  - Renal pain [Not Recovered/Not Resolved]
  - Weight decreased [Not Recovered/Not Resolved]
  - Drug effect faster than expected [Recovered/Resolved]
  - Blood urea increased [Unknown]
  - Asthenia [Not Recovered/Not Resolved]
  - Acute kidney injury [Unknown]
  - Hypotension [Recovering/Resolving]
  - Vision blurred [Unknown]
  - Feeling abnormal [Recovered/Resolved]
  - Hepatic enzyme abnormal [Unknown]
  - Urine odour abnormal [Unknown]
  - Renal disorder [Not Recovered/Not Resolved]
  - Dizziness [Unknown]
  - Dysuria [Unknown]
  - Breath odour [Unknown]
  - Pollakiuria [Recovered/Resolved]

NARRATIVE: CASE EVENT DATE: 2018
